FAERS Safety Report 8947786 (Version 2)
Quarter: 2013Q2

REPORT INFORMATION
  Report Type: Spontaneous
  Country: US (occurrence: US)
  Receive Date: 20121204
  Receipt Date: 20130503
  Transmission Date: 20140414
  Serious: Yes (Other)
  Sender: FDA-Public Use
  Company Number: PHHY2012US110392

PATIENT
  Age: 51 Year
  Sex: Female

DRUGS (1)
  1. SULFAMETHOXAZOLE+TRIMETHOPRIM [Suspect]
     Indication: INFECTION

REACTIONS (17)
  - Antiphospholipid syndrome [Recovered/Resolved]
  - Pyrexia [Recovered/Resolved]
  - Skin lesion [Recovered/Resolved]
  - Macule [Recovered/Resolved]
  - Purpura [Recovered/Resolved]
  - Necrosis [Recovered/Resolved]
  - Petechiae [Recovered/Resolved]
  - Malaise [Recovered/Resolved]
  - Skin discolouration [Recovered/Resolved]
  - Skin plaque [Recovered/Resolved]
  - Blister [Recovered/Resolved]
  - Peripheral coldness [Recovered/Resolved]
  - Scar [Recovered/Resolved]
  - Anaemia [Unknown]
  - Thrombocytopenia [Unknown]
  - Coagulopathy [Unknown]
  - Thrombosis [Unknown]
